FAERS Safety Report 14679694 (Version 1)
Quarter: 2018Q1

REPORT INFORMATION
  Report Type: Spontaneous
  Country: US (occurrence: US)
  Receive Date: 20180326
  Receipt Date: 20180326
  Transmission Date: 20180509
  Serious: Yes (Hospitalization)
  Sender: FDA-Public Use
  Company Number: US-BAYER-2018-053789

PATIENT
  Age: 51 Year
  Sex: Male
  Weight: 225 kg

DRUGS (3)
  1. WARFARIN [Interacting]
     Active Substance: WARFARIN
     Dosage: 7.5 MG, QD
  2. CIPROFLOXACIN. [Suspect]
     Active Substance: CIPROFLOXACIN
     Indication: OBSTRUCTIVE PANCREATITIS
     Dosage: UNK
  3. METRONIDAZOLE. [Interacting]
     Active Substance: METRONIDAZOLE
     Indication: OBSTRUCTIVE PANCREATITIS
     Dosage: UNK

REACTIONS (2)
  - International normalised ratio increased [None]
  - Drug interaction [None]
